FAERS Safety Report 6204098-X (Version None)
Quarter: 2009Q2

REPORT INFORMATION
  Report Type: 
  Country: None (occurrence: None)
  Receive Date: 20090527
  Receipt Date: 20090519
  Transmission Date: 20091009
  Serious: Yes (Hospitalization)
  Sender: FDA-Public Use
  Company Number: US-PFIZER INC-2006035362

PATIENT
  Sex: Female

DRUGS (7)
  1. MARAVIROC [Suspect]
     Indication: HIV INFECTION
     Route: 048
     Dates: start: 20050412, end: 20050726
  2. TRUVADA [Concomitant]
     Dosage: 1 TAB
     Route: 048
     Dates: start: 20050412
  3. ATAZANAVIR SULFATE [Concomitant]
     Route: 048
     Dates: start: 20050412
  4. RITONAVIR [Concomitant]
     Route: 048
     Dates: start: 20050412
  5. ABACAVIR [Concomitant]
     Route: 048
     Dates: start: 20020801
  6. MULTI-VITAMINS [Concomitant]
     Dosage: 1 TAB
     Route: 048
  7. AMBIEN [Concomitant]
     Dosage: AS NEEDED

REACTIONS (1)
  - INTERVERTEBRAL DISC PROTRUSION [None]
